FAERS Safety Report 7091000-4 (Version None)
Quarter: 2010Q4

REPORT INFORMATION
  Report Type: 
  Country: None (occurrence: None)
  Receive Date: 20101109
  Receipt Date: 20101028
  Transmission Date: 20110411
  Serious: Yes (Hospitalization)
  Sender: FDA-Public Use
  Company Number: US-CELGENEUS-163-21880-10082691

PATIENT
  Sex: Female

DRUGS (1)
  1. REVLIMID [Suspect]
     Route: 048
     Dates: start: 20100701, end: 20101028

REACTIONS (6)
  - DIARRHOEA [None]
  - DIZZINESS [None]
  - FALL [None]
  - HEAD INJURY [None]
  - PALPITATIONS [None]
  - PNEUMONIA [None]
